FAERS Safety Report 9306877 (Version 1)
Quarter: 2013Q2

REPORT INFORMATION
  Report Type: Spontaneous
  Country: US (occurrence: US)
  Receive Date: 20130523
  Receipt Date: 20130523
  Transmission Date: 20140414
  Serious: Yes (Hospitalization, Disabling, Other)
  Sender: FDA-Public Use
  Company Number: US-GILEAD-2013-0075619

PATIENT
  Sex: Female

DRUGS (1)
  1. RANEXA [Suspect]
     Indication: PRODUCT USED FOR UNKNOWN INDICATION

REACTIONS (6)
  - Loss of consciousness [Unknown]
  - Fall [Unknown]
  - Fracture [Unknown]
  - Head injury [Unknown]
  - Memory impairment [Unknown]
  - Wheelchair user [Unknown]
